FAERS Safety Report 9603375 (Version 3)
Quarter: 2013Q4

REPORT INFORMATION
  Report Type: Spontaneous
  Country: US (occurrence: US)
  Receive Date: 20131007
  Receipt Date: 20131209
  Transmission Date: 20140711
  Serious: Yes (Death, Hospitalization, Other)
  Sender: FDA-Public Use
  Company Number: US-ROCHE-1275287

PATIENT
  Age: 91 Year
  Sex: Female
  Weight: 47.67 kg

DRUGS (3)
  1. ERIVEDGE [Suspect]
     Indication: BASAL CELL CARCINOMA
     Route: 048
     Dates: start: 20130806, end: 20130910
  2. PREDNISONE [Concomitant]
     Route: 048
  3. LUMIGAN [Concomitant]
     Dosage: OU
     Route: 065

REACTIONS (5)
  - Death [Fatal]
  - Decreased appetite [Recovering/Resolving]
  - Weight decreased [Unknown]
  - Lethargy [Unknown]
  - Decreased activity [Recovering/Resolving]
